FAERS Safety Report 7849899-7 (Version None)
Quarter: 2011Q4

REPORT INFORMATION
  Report Type: 
  Country: None (occurrence: None)
  Receive Date: 20111026
  Receipt Date: 20111021
  Transmission Date: 20120403
  Serious: Yes (Life-Threatening, Hospitalization, Disabling, Other)
  Sender: FDA-Public Use
  Company Number: GB-CEPHALON-2011005481

PATIENT
  Age: 52 Year
  Sex: Female
  Weight: 95 kg

DRUGS (8)
  1. ACYCLOVIR [Concomitant]
  2. DEXAMETHASONE [Concomitant]
  3. CANDESARTAN CILEXETIL [Concomitant]
  4. PREDNISOLONE [Concomitant]
  5. BENDAMUSTINE HCL [Suspect]
     Indication: CHRONIC LYMPHOCYTIC LEUKAEMIA
     Route: 042
     Dates: start: 20110804
  6. RISEDRONIC ACID [Concomitant]
  7. RITUXIMAB [Suspect]
     Indication: CHRONIC LYMPHOCYTIC LEUKAEMIA
     Route: 042
     Dates: start: 20110804
  8. HYDROCORTISONE [Concomitant]

REACTIONS (1)
  - PROGRESSIVE MULTIFOCAL LEUKOENCEPHALOPATHY [None]
